FAERS Safety Report 9800053 (Version 3)
Quarter: 2015Q3

REPORT INFORMATION
  Report Type: Spontaneous
  Country: US (occurrence: US)
  Receive Date: 20140106
  Receipt Date: 20150806
  Transmission Date: 20151125
  Serious: No
  Sender: FDA-Public Use
  Company Number: US-GILEAD-2010-0032159

PATIENT
  Age: 77 Year
  Sex: Male

DRUGS (1)
  1. LETAIRIS [Suspect]
     Active Substance: AMBRISENTAN
     Indication: PULMONARY ARTERIAL HYPERTENSION
     Route: 048
     Dates: start: 20100118

REACTIONS (5)
  - Nausea [Not Recovered/Not Resolved]
  - Oedema peripheral [Unknown]
  - Malaise [Not Recovered/Not Resolved]
  - Decreased appetite [Not Recovered/Not Resolved]
  - Dyspnoea [Unknown]

NARRATIVE: CASE EVENT DATE: 20100901
